FAERS Safety Report 5168603-7 (Version None)
Quarter: 2006Q4

REPORT INFORMATION
  Report Type: 
  Country: None (occurrence: None)
  Receive Date: 20061209
  Receipt Date: 20060928
  Transmission Date: 20070319
  Serious: Yes (Death)
  Sender: FDA-Public Use
  Company Number: ES-ABBOTT-06P-144-0345192-01

PATIENT
  Sex: Male
  Weight: 105 kg

DRUGS (3)
  1. HUMIRA [Suspect]
     Indication: PSORIASIS
     Route: 058
     Dates: start: 20060321, end: 20060517
  2. ENALAPRIL MALEATE [Concomitant]
     Indication: HYPERTENSION
  3. INDAPAMIDE [Concomitant]
     Indication: HYPERTENSION

REACTIONS (1)
  - DEATH [None]
